FAERS Safety Report 8886886 (Version 1)
Quarter: 2012Q4

REPORT INFORMATION
  Report Type: 
  Country: CA (occurrence: CA)
  Receive Date: 20121105
  Receipt Date: 20121105
  Transmission Date: 20130627
  Serious: Yes (Other)
  Sender: FDA-Public Use
  Company Number: CA-PFIZER INC-2012269565

PATIENT

DRUGS (2)
  1. CELEBREX [Suspect]
     Indication: INFLAMMATION
     Dosage: 100 mg, 1x/day
  2. CELEBREX [Suspect]
     Dosage: less than and greater than or equal to 200mg

REACTIONS (1)
  - Cardiac disorder [Unknown]
